FAERS Safety Report 4895007-4 (Version None)
Quarter: 2006Q1

REPORT INFORMATION
  Report Type: 
  Country: None (occurrence: None)
  Receive Date: 20060130
  Receipt Date: 20050822
  Transmission Date: 20060701
  Serious: No
  Sender: FDA-Public Use
  Company Number: US-BRISTOL-MYERS SQUIBB COMPANY-13085428

PATIENT
  Age: 66 Year
  Sex: Male
  Weight: 99 kg

DRUGS (6)
  1. GLUCOPHAGE [Suspect]
     Indication: DIABETES MELLITUS
     Route: 048
  2. ACCUPRIL [Concomitant]
  3. NORVASC [Concomitant]
  4. PLAVIX [Concomitant]
  5. VYTORIN [Concomitant]
  6. VITAMINS [Concomitant]

REACTIONS (1)
  - BLOOD GLUCOSE INCREASED [None]
